FAERS Safety Report 11218674 (Version 5)
Quarter: 2015Q3

REPORT INFORMATION
  Report Type: Report from Study
  Country: TR (occurrence: TR)
  Receive Date: 20150625
  Receipt Date: 20150729
  Transmission Date: 20151125
  Serious: Yes (Hospitalization)
  Sender: FDA-Public Use
  Company Number: PHHO2015TR010491

PATIENT
  Age: 28 Year
  Sex: Male
  Weight: 65.5 kg

DRUGS (5)
  1. DICLOFENAC [Concomitant]
     Active Substance: DICLOFENAC
     Indication: ANKYLOSING SPONDYLITIS
     Dosage: 75 MG, BID
     Route: 048
     Dates: start: 2013
  2. AIN457 [Suspect]
     Active Substance: SECUKINUMAB
     Dosage: 75 MG /150 MG
     Route: 058
  3. METHOTREXATE [Suspect]
     Active Substance: METHOTREXATE
     Indication: ANKYLOSING SPONDYLITIS
     Dosage: 15 MG, QD
     Route: 048
     Dates: start: 2012, end: 20150615
  4. AIN457 [Suspect]
     Active Substance: SECUKINUMAB
     Indication: ANKYLOSING SPONDYLITIS
     Dosage: 75 MG /150 MG
     Route: 058
     Dates: start: 20140919
  5. METHYLPREDISOLONE [Concomitant]
     Active Substance: METHYLPREDNISOLONE
     Indication: ANKYLOSING SPONDYLITIS
     Dosage: 4 MG, QD
     Route: 048
     Dates: start: 2010

REACTIONS (1)
  - C-reactive protein increased [Recovering/Resolving]

NARRATIVE: CASE EVENT DATE: 20150310
